FAERS Safety Report 17082094 (Version 2)
Quarter: 2020Q3

REPORT INFORMATION
  Report Type: Report from Study
  Country: US (occurrence: US)
  Receive Date: 20191127
  Receipt Date: 20200709
  Transmission Date: 20201102
  Serious: Yes (Other)
  Sender: FDA-Public Use
  Company Number: PHHY2018US139066

PATIENT
  Age: 45 Year
  Sex: Female

DRUGS (7)
  1. OMEGA?3 FATTY ACIDS [Concomitant]
     Active Substance: OMEGA-3 FATTY ACIDS
     Indication: SUPPLEMENTATION THERAPY
     Dosage: UNK
     Route: 065
     Dates: start: 20190322
  2. AMANTADINE. [Concomitant]
     Active Substance: AMANTADINE HYDROCHLORIDE
     Indication: DYSKINESIA
     Dosage: UNK
     Route: 065
     Dates: start: 20190322
  3. GILENYA [Suspect]
     Active Substance: FINGOLIMOD HYDROCHLORIDE
     Indication: MULTIPLE SCLEROSIS
     Dosage: UNK, QD
     Route: 048
  4. LOVENOX [Concomitant]
     Active Substance: ENOXAPARIN SODIUM
     Indication: PROPHYLAXIS
     Dosage: UNK
     Route: 065
     Dates: start: 20190323, end: 20190323
  5. CEFTIN [Concomitant]
     Active Substance: CEFUROXIME AXETIL
     Indication: PULMONARY AMYLOIDOSIS
     Route: 065
  6. ROCEPHIN [Concomitant]
     Active Substance: CEFTRIAXONE SODIUM
     Indication: PULMONARY AMYLOIDOSIS
     Dosage: UNK
     Route: 065
     Dates: start: 20190323, end: 20190324
  7. LOVAZA [Concomitant]
     Active Substance: OMEGA-3-ACID ETHYL ESTERS
     Indication: SUPPLEMENTATION THERAPY
     Dosage: UNK
     Route: 065
     Dates: start: 20190323, end: 20190324

REACTIONS (22)
  - Pulmonary mass [Unknown]
  - Coronavirus test positive [Recovered/Resolved]
  - Back pain [Recovered/Resolved]
  - Dermal cyst [Unknown]
  - Cough [Recovered/Resolved]
  - Vomiting [Recovered/Resolved]
  - White blood cell count increased [Recovered/Resolved]
  - Nystagmus [Unknown]
  - Skin lesion [Recovered/Resolved]
  - Rhinorrhoea [Recovered/Resolved]
  - Muscular weakness [Recovered/Resolved]
  - Lymphocyte count decreased [Unknown]
  - Oropharyngeal pain [Recovered/Resolved]
  - Pneumonia [Recovered/Resolved]
  - Chest pain [Unknown]
  - Hypoaesthesia [Unknown]
  - Urinary tract infection [Recovered/Resolved]
  - Back pain [Unknown]
  - Paraparesis [Unknown]
  - Oscillopsia [Unknown]
  - Pyrexia [Recovered/Resolved]
  - Nausea [Recovered/Resolved]

NARRATIVE: CASE EVENT DATE: 20180108
